FAERS Safety Report 16910656 (Version 1)
Quarter: 2019Q4

REPORT INFORMATION
  Report Type: Spontaneous
  Country: US (occurrence: US)
  Receive Date: 20191012
  Receipt Date: 20191012
  Transmission Date: 20200122
  Serious: Yes (Other)
  Sender: FDA-Public Use
  Company Number: US-JNJFOC-20191000567

PATIENT
  Age: 67 Year
  Sex: Female
  Weight: 86.26 kg

DRUGS (1)
  1. NEUTROGENA AGE SHIELD FACE SPF 110 [Suspect]
     Active Substance: AVOBENZONE\HOMOSALATE\OCTISALATE\OCTOCRYLENE\OXYBENZONE
     Dosage: APPLIED LIBERALLY
     Dates: start: 20190910, end: 20190910

REACTIONS (3)
  - Application site pain [Recovered/Resolved]
  - Application site pruritus [Recovered/Resolved]
  - Application site swelling [Recovered/Resolved]

NARRATIVE: CASE EVENT DATE: 20190910
